FAERS Safety Report 6778894-4 (Version None)
Quarter: 2010Q2

REPORT INFORMATION
  Report Type: 
  Country: None (occurrence: None)
  Receive Date: 20100618
  Receipt Date: 20100609
  Transmission Date: 20101027
  Serious: Yes (Hospitalization)
  Sender: FDA-Public Use
  Company Number: FR-KINGPHARMUSA00001-K201000723

PATIENT
  Age: 83 Year
  Sex: Male

DRUGS (16)
  1. ALTACE [Suspect]
     Indication: RENAL FAILURE
     Dosage: 2.5 MG, QD
     Route: 048
     Dates: start: 20030101
  2. CLOPIDOGREL BISULFATE [Suspect]
     Indication: CORONARY ARTERY DISEASE
     Dosage: 75 MG, QD
     Route: 048
     Dates: start: 20030101
  3. CITALOPRAM HYDROBROMIDE [Suspect]
     Indication: DEPRESSION
     Dosage: 40 MG, QD
     Route: 048
     Dates: start: 20070101
  4. SIMVASTATIN [Suspect]
     Indication: CORONARY ARTERY DISEASE
     Dosage: 20 MG, QD
     Route: 048
     Dates: start: 20030101
  5. TAMSULOSIN HYDROCHLORIDE [Suspect]
     Indication: BENIGN PROSTATIC HYPERPLASIA
     Dosage: 0.4 MG, QD
     Route: 048
     Dates: start: 20070101
  6. MARCUMAR [Suspect]
     Indication: ATRIAL FIBRILLATION
     Dosage: UNK
     Route: 048
     Dates: start: 19980101, end: 20080919
  7. FERROUS SULFATE TAB [Suspect]
     Indication: ANAEMIA
     Dosage: 1 DF, BID
     Route: 048
     Dates: start: 20040101, end: 20080919
  8. GLUCOBAY [Suspect]
     Indication: TYPE 2 DIABETES MELLITUS
     Dosage: 50 MG, TID
     Route: 048
     Dates: start: 20050101, end: 20080919
  9. KALINOR [Suspect]
     Indication: HYPOKALAEMIA
     Dosage: 1 DF, QD
     Route: 048
     Dates: start: 20080201, end: 20080919
  10. NOVODIGAL [Suspect]
     Indication: CARDIAC FAILURE CHRONIC
     Dosage: 0.2 MG, QD
     Route: 048
     Dates: start: 20030101
  11. PANTOZOL-RIFUN [Suspect]
     Dosage: 20 MG, QD
     Route: 048
     Dates: start: 20080201
  12. LORAZEPAM [Suspect]
     Indication: RESTLESSNESS
     Dosage: 0.5 MG, QD
     Route: 048
     Dates: start: 20080101, end: 20080919
  13. TORSEMIDE [Suspect]
     Indication: CARDIAC FAILURE CHRONIC
     Dosage: 10 MG, QD
     Route: 048
     Dates: start: 20080201, end: 20080919
  14. VIANI [Suspect]
     Indication: CHRONIC OBSTRUCTIVE PULMONARY DISEASE
     Dosage: 1 DF, BID
     Dates: start: 20030101
  15. XIPAMIDE [Suspect]
     Indication: CARDIAC FAILURE CHRONIC
     Dosage: 40 MG, QD
     Route: 048
     Dates: start: 20080201, end: 20080919
  16. ALLOPURINOL [Suspect]
     Dosage: UNK
     Dates: end: 20080901

REACTIONS (5)
  - ASTHENIA [None]
  - HYPOTENSION [None]
  - MELAENA [None]
  - RECTAL HAEMORRHAGE [None]
  - SOMNOLENCE [None]
